FAERS Safety Report 7298870-5 (Version None)
Quarter: 2011Q1

REPORT INFORMATION
  Report Type: 
  Country: None (occurrence: None)
  Receive Date: 20110217
  Receipt Date: 20110208
  Transmission Date: 20110831
  Serious: Yes (Hospitalization)
  Sender: FDA-Public Use
  Company Number: FR-ROCHE-758667

PATIENT
  Sex: Female
  Weight: 70 kg

DRUGS (5)
  1. GRANISETRON HYDROCHLORIDE [Suspect]
     Route: 065
     Dates: start: 20101005, end: 20101006
  2. TEMOZOLOMIDE [Suspect]
     Indication: GLIOBLASTOMA
     Dosage: FREQUENCY: QD. LAST DATE PRIOR TO SAE: 06 OCTOBER 2010. FORM: PILL.
     Route: 048
     Dates: start: 20101005
  3. BLINDED BEVACIZUMAB [Suspect]
     Indication: GLIOBLASTOMA
     Dosage: LAST DATE PRIOR TO SAE: 05 OCTOBER 2010
     Route: 042
     Dates: start: 20101005
  4. TRAMADOL [Suspect]
     Route: 065
     Dates: start: 20101005, end: 20101006
  5. LAMALINE [Concomitant]
     Dates: start: 20101005, end: 20101006

REACTIONS (1)
  - VERTIGO [None]
